FAERS Safety Report 11167974 (Version 1)
Quarter: 2015Q2

REPORT INFORMATION
  Report Type: Spontaneous
  Country: US (occurrence: None)
  Receive Date: 20150515
  Receipt Date: 20150515
  Transmission Date: 20150821
  Serious: Yes (Other)
  Sender: FDA-Public Use
  Company Number: 2014010055

PATIENT
  Sex: Male

DRUGS (1)
  1. CIMZIA [Suspect]
     Active Substance: CERTOLIZUMAB PEGOL
     Indication: CROHN^S DISEASE
     Dates: start: 20140210

REACTIONS (7)
  - General physical health deterioration [None]
  - Balance disorder [None]
  - Haemorrhage [None]
  - Feeling abnormal [None]
  - Pain [None]
  - Drug dose omission [None]
  - Adverse event [None]

NARRATIVE: CASE EVENT DATE: 2014
